FAERS Safety Report 9786629 (Version 1)
Quarter: 2013Q4

REPORT INFORMATION
  Report Type: Spontaneous
  Country: GB (occurrence: GB)
  Receive Date: 20131227
  Receipt Date: 20131227
  Transmission Date: 20140711
  Serious: Yes (Life-Threatening, Hospitalization)
  Sender: FDA-Public Use
  Company Number: GB-MYLANLABS-2013S1028348

PATIENT
  Age: 58 Year
  Sex: Male
  Weight: 90 kg

DRUGS (4)
  1. VENLAFAXINE [Suspect]
     Indication: ANXIETY
     Route: 048
     Dates: start: 20130801
  2. VENLAFAXINE [Suspect]
     Indication: ANXIETY
     Route: 048
  3. OLANZAPINE [Concomitant]
     Indication: PRODUCT USED FOR UNKNOWN INDICATION
  4. OMEPRAZOLE [Concomitant]
     Indication: HIATUS HERNIA

REACTIONS (7)
  - Agitation [Not Recovered/Not Resolved]
  - Anxiety [Not Recovered/Not Resolved]
  - Intentional self-injury [Not Recovered/Not Resolved]
  - Dissociation [Not Recovered/Not Resolved]
  - Hallucination, auditory [Not Recovered/Not Resolved]
  - Psychotic disorder [Not Recovered/Not Resolved]
  - Aggression [Not Recovered/Not Resolved]
